FAERS Safety Report 10044428 (Version 1)
Quarter: 2014Q1

REPORT INFORMATION
  Report Type: Spontaneous
  Country: TR (occurrence: TR)
  Receive Date: 20140328
  Receipt Date: 20140328
  Transmission Date: 20141002
  Serious: Yes (Other)
  Sender: FDA-Public Use
  Company Number: TR-SA-2014SA035203

PATIENT
  Age: 41 Year
  Sex: Female
  Weight: 80 kg

DRUGS (1)
  1. TAXOTERE [Suspect]
     Indication: LUNG NEOPLASM MALIGNANT
     Dosage: DOSE: 33
     Route: 042
     Dates: start: 20140306, end: 20140306

REACTIONS (3)
  - Respiratory distress [Recovered/Resolved]
  - Erythema [Recovered/Resolved]
  - Feeling abnormal [Recovered/Resolved]
